APPROVED DRUG PRODUCT: HALOG
Active Ingredient: HALCINONIDE
Strength: 0.1% **Federal Register determination that product was not discontinued or withdrawn for safety or effectiveness reasons**
Dosage Form/Route: SOLUTION;TOPICAL
Application: N017823 | Product #001 | TE Code: AT
Applicant: SUN PHARMACEUTICAL INDUSTRIES INC
Approved: Approved Prior to Jan 1, 1982 | RLD: Yes | RS: No | Type: RX